FAERS Safety Report 7957596-2 (Version None)
Quarter: 2011Q4

REPORT INFORMATION
  Report Type: 
  Country: None (occurrence: None)
  Receive Date: 20111201
  Receipt Date: 20111110
  Transmission Date: 20120403
  Serious: Yes (Hospitalization, Other)
  Sender: FDA-Public Use
  Company Number: DE-2011-1263

PATIENT
  Sex: Female
  Weight: 107 kg

DRUGS (6)
  1. CISPLATIN [Suspect]
     Indication: NON-SMALL CELL LUNG CANCER
     Dosage: 100 MG IV
     Route: 042
     Dates: start: 20110318, end: 20110524
  2. NAVELBINE [Suspect]
     Indication: NON-SMALL CELL LUNG CANCER
     Dosage: 40 MG IV
     Route: 042
     Dates: start: 20110523, end: 20110621
  3. LEVOTHYROXINE SODIUM [Concomitant]
  4. FLUOXETINE [Concomitant]
  5. DELIX PLUS [Concomitant]
  6. PACLITAXEL [Concomitant]

REACTIONS (6)
  - RED BLOOD CELL COUNT DECREASED [None]
  - BLOOD CREATININE INCREASED [None]
  - PLATELET COUNT DECREASED [None]
  - WHITE BLOOD CELL COUNT DECREASED [None]
  - HAEMATOCRIT DECREASED [None]
  - HAEMOGLOBIN DECREASED [None]
